FAERS Safety Report 10630122 (Version 1)
Quarter: 2014Q4

REPORT INFORMATION
  Report Type: Spontaneous
  Country: US (occurrence: US)
  Receive Date: 20141205
  Receipt Date: 20141205
  Transmission Date: 20150529
  Serious: No
  Sender: FDA-Public Use
  Company Number: US-BRISTOL-MYERS SQUIBB COMPANY-21371216

PATIENT
  Age: 76 Year
  Sex: Male
  Weight: 89.79 kg

DRUGS (9)
  1. LIPITOR [Concomitant]
     Active Substance: ATORVASTATIN CALCIUM
     Indication: BLOOD CHOLESTEROL
  2. METOPROLOL [Concomitant]
     Active Substance: METOPROLOL
  3. TIMOLOL [Concomitant]
     Active Substance: TIMOLOL
     Indication: EYE DISORDER
  4. PROTONIX [Concomitant]
     Active Substance: PANTOPRAZOLE SODIUM
     Indication: GASTRIC DISORDER
  5. DIGOXIN. [Concomitant]
     Active Substance: DIGOXIN
  6. MULTIVITAMINS [Concomitant]
     Active Substance: VITAMINS
  7. FLOMAX [Concomitant]
     Active Substance: TAMSULOSIN HYDROCHLORIDE
     Indication: PROSTATIC DISORDER
  8. XALATAN [Concomitant]
     Active Substance: LATANOPROST
     Indication: EYE DISORDER
  9. ELIQUIS [Suspect]
     Active Substance: APIXABAN
     Indication: CEREBROVASCULAR ACCIDENT PROPHYLAXIS
     Dosage: DOSE:2*2.5MG
     Dates: start: 20140903, end: 201409

REACTIONS (1)
  - Heart rate increased [Recovering/Resolving]

NARRATIVE: CASE EVENT DATE: 201409
